FAERS Safety Report 10949650 (Version 1)
Quarter: 2015Q1

REPORT INFORMATION
  Report Type: Spontaneous
  Country: US (occurrence: None)
  Receive Date: 20150226
  Receipt Date: 20150226
  Transmission Date: 20150721
  Serious: Yes (Hospitalization)
  Sender: FDA-Public Use
  Company Number: TAP2006Q01250

PATIENT
  Age: 36 Year
  Sex: Female

DRUGS (1)
  1. PREVACID [Suspect]
     Active Substance: LANSOPRAZOLE
     Route: 048
     Dates: start: 20060628, end: 20060706

REACTIONS (9)
  - Loss of consciousness [None]
  - Dyspnoea [None]
  - Blood pressure decreased [None]
  - Diarrhoea [None]
  - Anaphylactic reaction [None]
  - Nausea [None]
  - Hot flush [None]
  - Heart rate increased [None]
  - Chest pain [None]

NARRATIVE: CASE EVENT DATE: 20060628
